FAERS Safety Report 4706140-1 (Version None)
Quarter: 2005Q2

REPORT INFORMATION
  Report Type: 
  Country: None (occurrence: None)
  Receive Date: 20050627
  Receipt Date: 20050412
  Transmission Date: 20051028
  Serious: Yes (Other)
  Sender: FDA-Public Use
  Company Number: 05-000268

PATIENT
  Age: 55 Year
  Sex: Female

DRUGS (12)
  1. LOESTRIN 1.5/30 [Suspect]
     Dosage: 30/1500 UG, ORAL
     Route: 048
     Dates: start: 19960224
  2. PREMPRO [Suspect]
     Indication: HORMONE REPLACEMENT THERAPY
     Dosage: 0.625/2.5 MG, ORAL
     Route: 048
     Dates: start: 19960417, end: 20010618
  3. PREMPRO [Suspect]
     Indication: HORMONE REPLACEMENT THERAPY
     Dosage: 0.625/2.5 MG, ORAL
     Route: 048
     Dates: start: 20010618
  4. PREMARIN(ESTROGENS CONJUGATED) CREAM [Concomitant]
     Dosage: VAGINAL
     Route: 067
     Dates: start: 20000525
  5. NAPROXEN SODIUM (NAPROXEN SODIUM) TABLET, 550 MG [Concomitant]
  6. CARISOPRODOL (CARISOPRODOL) TABLET, 350 MG [Concomitant]
  7. HYDROCODONE W/ ACETAMINOPHEN (PARACETAMOL, HYDROCODONE BITARTRATE) TAB [Concomitant]
  8. ERY-TAB CAPSULE [Concomitant]
  9. DAYPRO (OXAPROZIN) TABLET, 600 MG [Concomitant]
  10. VIOXX [Concomitant]
  11. ALLEGRA (FEXOFENADINE HYDROCHLORIDE) TABLET, 60 MG [Concomitant]
  12. ERYTHROMYCIN SOLUTION (EXCEPT SYRUP), 2 % [Concomitant]

REACTIONS (1)
  - BREAST CANCER [None]
